FAERS Safety Report 6759989-8 (Version None)
Quarter: 2010Q2

REPORT INFORMATION
  Report Type: 
  Country: None (occurrence: None)
  Receive Date: 20100608
  Receipt Date: 20100525
  Transmission Date: 20101027
  Serious: No
  Sender: FDA-Public Use
  Company Number: US-B.I. PHARMACEUTICALS,INC./RIDGEFIELD-2010-BP-05897BP

PATIENT
  Age: 63 Year
  Sex: Female

DRUGS (1)
  1. MICARDIS HCT [Suspect]
     Dosage: 80MG/12.5MG
     Dates: start: 20100101, end: 20100501

REACTIONS (3)
  - BRONCHITIS [None]
  - COUGH [None]
  - PULMONARY CONGESTION [None]
